FAERS Safety Report 9919647 (Version 1)
Quarter: 2014Q1

REPORT INFORMATION
  Report Type: Spontaneous
  Country: IT (occurrence: IT)
  Receive Date: 20140224
  Receipt Date: 20140224
  Transmission Date: 20141002
  Serious: Yes (Other)
  Sender: FDA-Public Use
  Company Number: IT-PFIZER INC-2014043683

PATIENT
  Age: 44 Year
  Sex: Male

DRUGS (7)
  1. FLUDARABINE PHOSPHATE [Suspect]
     Indication: NON-HODGKIN^S LYMPHOMA
     Dosage: 4 CYCLES
  2. VINCRISTINE SULFATE [Suspect]
     Indication: NON-HODGKIN^S LYMPHOMA
     Dosage: UNK
  3. PREDNISOLONE [Suspect]
     Indication: NON-HODGKIN^S LYMPHOMA
     Dosage: UNK
  4. MITOXANTRONE HCL [Suspect]
     Indication: NON-HODGKIN^S LYMPHOMA
     Dosage: 4 CYCLES
  5. CYCLOPHOSPHAMIDE [Suspect]
     Indication: NON-HODGKIN^S LYMPHOMA
     Dosage: UNK
  6. CHLORAMBUCIL [Suspect]
     Indication: NON-HODGKIN^S LYMPHOMA
     Dosage: 6 CYCLES
  7. CLOZAPINE [Suspect]
     Indication: SCHIZOPHRENIA
     Dosage: UNK

REACTIONS (1)
  - Leukopenia [Unknown]
